FAERS Safety Report 12438862 (Version 1)
Quarter: 2016Q2

REPORT INFORMATION
  Report Type: Spontaneous
  Country: US (occurrence: US)
  Receive Date: 20160606
  Receipt Date: 20160606
  Transmission Date: 20160815
  Serious: No
  Sender: FDA-Public Use
  Company Number: US-JAZZ-2015-US-018107

PATIENT
  Age: 47 Year
  Sex: Female
  Weight: 108.8 kg

DRUGS (14)
  1. DEXTROAMPHETAMINE. [Concomitant]
     Active Substance: DEXTROAMPHETAMINE
     Indication: SOMNOLENCE
     Dosage: UNK
     Dates: start: 20100101
  2. VERAPAMIL [Concomitant]
     Active Substance: VERAPAMIL HYDROCHLORIDE
     Indication: CLUSTER HEADACHE
     Dosage: UNK
     Dates: start: 20120101
  3. TRAZODONE HYDROCHLORIDE. [Concomitant]
     Active Substance: TRAZODONE HYDROCHLORIDE
     Indication: PRODUCT USED FOR UNKNOWN INDICATION
     Dosage: UNK
     Dates: start: 20141230, end: 20151021
  4. XYREM [Suspect]
     Active Substance: SODIUM OXYBATE
     Indication: INSOMNIA
  5. CELEBREX [Concomitant]
     Active Substance: CELECOXIB
     Indication: PRODUCT USED FOR UNKNOWN INDICATION
     Dosage: UNK
     Dates: start: 20130101
  6. DIPHENHYDRAMINE HCL [Concomitant]
     Active Substance: DIPHENHYDRAMINE HYDROCHLORIDE
     Indication: PRODUCT USED FOR UNKNOWN INDICATION
     Dosage: UNK
     Dates: start: 20140101, end: 20151022
  7. XYREM [Suspect]
     Active Substance: SODIUM OXYBATE
     Indication: SOMNOLENCE
     Dosage: 1.25 G SECOND DOSE
     Route: 048
     Dates: start: 20151029
  8. GABAPENTIN. [Concomitant]
     Active Substance: GABAPENTIN
     Indication: CLUSTER HEADACHE
     Dosage: UNK
     Dates: start: 20130101
  9. XYREM [Suspect]
     Active Substance: SODIUM OXYBATE
     Indication: NARCOLEPSY
     Dosage: 2.5 G FIRST DOSE
     Route: 048
     Dates: start: 20151029
  10. PROMETHAZINE [Concomitant]
     Active Substance: PROMETHAZINE\PROMETHAZINE HYDROCHLORIDE
     Indication: PRODUCT USED FOR UNKNOWN INDICATION
     Dosage: UNK
     Dates: start: 20140101, end: 20151022
  11. CLARITIN [Concomitant]
     Active Substance: LORATADINE
     Indication: PRODUCT USED FOR UNKNOWN INDICATION
     Dosage: UNK
     Dates: start: 20030101
  12. ZOFRAN [Concomitant]
     Active Substance: ONDANSETRON HYDROCHLORIDE
     Indication: PRODUCT USED FOR UNKNOWN INDICATION
     Dosage: UNK
     Dates: start: 20080101
  13. ELOCON [Concomitant]
     Active Substance: MOMETASONE FUROATE
     Indication: PRODUCT USED FOR UNKNOWN INDICATION
     Dosage: UNK
     Dates: start: 20150818
  14. IMITREX [Concomitant]
     Active Substance: SUMATRIPTAN SUCCINATE
     Indication: PRODUCT USED FOR UNKNOWN INDICATION
     Dosage: UNK
     Dates: start: 20120101

REACTIONS (2)
  - Therapeutic response unexpected [Unknown]
  - Pre-existing condition improved [Unknown]

NARRATIVE: CASE EVENT DATE: 201510
